FAERS Safety Report 10420762 (Version 1)
Quarter: 2014Q3

REPORT INFORMATION
  Report Type: Spontaneous
  Country: US (occurrence: None)
  Receive Date: 20140709
  Receipt Date: 20140709
  Transmission Date: 20150326
  Serious: Yes (Other)
  Sender: FDA-Public Use
  Company Number: PHHY2010US37550

PATIENT
  Age: 72 Year
  Sex: Female
  Weight: 74 kg

DRUGS (7)
  1. ZETIA [Concomitant]
     Active Substance: EZETIMIBE
  2. MAGNESIUM SUPPLEMENTS (MAGNESIUM) [Concomitant]
  3. NORFLEX (ORPHENADRINE CITRATE) [Concomitant]
  4. GLEEVEC [Suspect]
     Active Substance: IMATINIB MESYLATE
     Indication: CHRONIC MYELOID LEUKAEMIA
     Route: 048
     Dates: start: 20071021
  5. CALCIUM SUPPLEMENT (CALCIUM) [Concomitant]
  6. NIACIN (NICOTINIC ACID) [Concomitant]
  7. OMEPRAZOLE(OMEPRAZOLE) [Concomitant]
     Active Substance: OMEPRAZOLE

REACTIONS (1)
  - Muscle spasms [None]

NARRATIVE: CASE EVENT DATE: 20090828
